FAERS Safety Report 5086676-7 (Version None)
Quarter: 2006Q3

REPORT INFORMATION
  Report Type: 
  Country: None (occurrence: None)
  Receive Date: 20060823
  Receipt Date: 20051206
  Transmission Date: 20061208
  Serious: Yes (Other)
  Sender: FDA-Public Use
  Company Number: US-GLAXOSMITHKLINE-A0584853A

PATIENT
  Age: 71 Year
  Sex: Female

DRUGS (5)
  1. MALARONE [Suspect]
     Indication: MALARIA
     Route: 048
     Dates: start: 20050301, end: 20050101
  2. ACTONEL [Concomitant]
  3. PROTONIX [Concomitant]
  4. VITAMIN [Concomitant]
  5. ZETIA [Concomitant]

REACTIONS (1)
  - ERYTHEMA MULTIFORME [None]
